FAERS Safety Report 11258793 (Version 1)
Quarter: 2015Q3

REPORT INFORMATION
  Report Type: Report from Study
  Country: US (occurrence: US)
  Receive Date: 20150710
  Receipt Date: 20150710
  Transmission Date: 20151125
  Serious: Yes (Death, Other)
  Sender: FDA-Public Use
  Company Number: US-GILEAD-2015-0162672

PATIENT
  Age: 73 Year
  Sex: Female

DRUGS (8)
  1. PILOCARPINE. [Concomitant]
     Active Substance: PILOCARPINE
  2. SILDENAFIL. [Concomitant]
     Active Substance: SILDENAFIL
  3. AMLODIPINE [Concomitant]
     Active Substance: AMLODIPINE BESYLATE
  4. AMBRISENTAN [Suspect]
     Active Substance: AMBRISENTAN
     Indication: PULMONARY HYPERTENSION
     Dosage: 5 MG, QD
     Route: 065
     Dates: start: 20150122
  5. METOCLOPRAMIDE. [Concomitant]
     Active Substance: METOCLOPRAMIDE
  6. COREG [Concomitant]
     Active Substance: CARVEDILOL
  7. XIFAXAN [Concomitant]
     Active Substance: RIFAXIMIN
  8. CARAFATE [Concomitant]
     Active Substance: SUCRALFATE

REACTIONS (2)
  - Pneumonia [Fatal]
  - Scleroderma [Fatal]
